FAERS Safety Report 6114277-8 (Version None)
Quarter: 2009Q1

REPORT INFORMATION
  Report Type: 
  Country: None (occurrence: None)
  Receive Date: 20090312
  Receipt Date: 20081117
  Transmission Date: 20090719
  Serious: No
  Sender: FDA-Public Use
  Company Number: US-ABBOTT-08P-163-0488443-00

PATIENT
  Sex: Female
  Weight: 63.56 kg

DRUGS (1)
  1. DEPAKOTE [Suspect]
     Indication: BIPOLAR DISORDER
     Dosage: 2 TABS AT BEDTIME
     Route: 048

REACTIONS (4)
  - ALCOHOL USE [None]
  - HOSTILITY [None]
  - MANIA [None]
  - TOBACCO USER [None]
